FAERS Safety Report 5223737-3 (Version None)
Quarter: 2007Q1

REPORT INFORMATION
  Report Type: 
  Country: None (occurrence: None)
  Receive Date: 20070130
  Receipt Date: 20070117
  Transmission Date: 20070707
  Serious: Yes (Hospitalization, Other)
  Sender: FDA-Public Use
  Company Number: PHEH2006US14441

PATIENT
  Age: 25 Year
  Sex: Female
  Weight: 78.9 kg

DRUGS (2)
  1. METHERGINE [Suspect]
     Indication: POSTPARTUM HAEMORRHAGE
     Dosage: 0.2 MG, ONCE/SINGLE
     Route: 030
     Dates: start: 20061118
  2. UNASYN [Concomitant]
     Indication: SEPSIS
     Dosage: 3 G, Q6H
     Route: 042
     Dates: start: 20061118

REACTIONS (10)
  - BLOOD PRESSURE INCREASED [None]
  - BODY TEMPERATURE INCREASED [None]
  - COMPLICATION OF DELIVERY [None]
  - CYANOSIS [None]
  - DYSPNOEA [None]
  - HEADACHE [None]
  - OXYGEN SATURATION DECREASED [None]
  - POSTPARTUM SEPSIS [None]
  - TACHYCARDIA [None]
  - TREMOR [None]
